FAERS Safety Report 8051183-6 (Version None)
Quarter: 2012Q1

REPORT INFORMATION
  Report Type: 
  Country: None (occurrence: None)
  Receive Date: 20120117
  Receipt Date: 20120113
  Transmission Date: 20120608
  Serious: Yes (Hospitalization, Other)
  Sender: FDA-Public Use
  Company Number: PHHO2011JP020152

PATIENT
  Sex: Female
  Weight: 41.3 kg

DRUGS (13)
  1. GILENYA [Suspect]
     Dosage: 0.5 MG, UNK
     Route: 048
     Dates: start: 20080724, end: 20111226
  2. SIMVASTATIN [Concomitant]
     Indication: PROPHYLAXIS
     Dosage: 10 MG, UNK
     Route: 048
     Dates: start: 20090105
  3. CATLEP [Concomitant]
     Indication: BACK PAIN
     Dosage: UNK
     Route: 062
     Dates: start: 20080710
  4. LOXONIN [Concomitant]
     Indication: HEADACHE
     Dosage: 180 MG, UNK
     Route: 048
     Dates: start: 20080828
  5. MOTILIUM [Concomitant]
     Indication: NAUSEA
     Dosage: 30 MG, UNK
     Route: 048
     Dates: start: 20110929, end: 20111126
  6. MYONAL [Concomitant]
     Indication: INSOMNIA
     Dosage: 1.5 MG, UNK
     Route: 048
     Dates: start: 20101011
  7. URITOS [Concomitant]
  8. TIZANIDINE HCL [Concomitant]
     Indication: MULTIPLE SCLEROSIS
     Dosage: 3 MG, UNK
     Route: 048
     Dates: start: 20111011
  9. MAGMITT KENEI [Concomitant]
     Indication: CONSTIPATION
     Dosage: 990 MG, UNK
     Route: 048
     Dates: start: 20110701
  10. MUCOSTA [Concomitant]
     Indication: PROPHYLAXIS AGAINST GASTROINTESTINAL ULCER
     Dosage: 300 MG, UNK
     Route: 048
     Dates: start: 20080828
  11. DEPAS [Concomitant]
     Indication: INSOMNIA
     Dosage: 1.5 MG, UNK
     Route: 048
     Dates: start: 20101011
  12. AMOBAN [Concomitant]
     Indication: INSOMNIA
     Dosage: 7.5 MG, UNK
     Route: 048
     Dates: start: 20100701, end: 20111126
  13. LANSOPRAZOLE [Concomitant]
     Indication: GASTRIC ULCER
     Dosage: 30 MG, UNK
     Route: 048
     Dates: start: 20110929

REACTIONS (2)
  - MULTIPLE SCLEROSIS [None]
  - LYMPHOMA [None]
